FAERS Safety Report 12256518 (Version 1)
Quarter: 2016Q2

REPORT INFORMATION
  Report Type: Spontaneous
  Country: US (occurrence: None)
  Receive Date: 20160411
  Receipt Date: 20160411
  Transmission Date: 20160815
  Serious: No
  Sender: FDA-Public Use
  Company Number: None

PATIENT
  Age: 56 Year
  Sex: Female

DRUGS (1)
  1. XELJANZ [Suspect]
     Active Substance: TOFACITINIB CITRATE
     Indication: RHEUMATOID ARTHRITIS
     Dosage: 1 TABLET BID PO
     Route: 048
     Dates: start: 20150427

REACTIONS (4)
  - Vertigo [None]
  - Nasopharyngitis [None]
  - Ear infection [None]
  - Sinusitis [None]

NARRATIVE: CASE EVENT DATE: 201601
